FAERS Safety Report 5503886-2 (Version None)
Quarter: 2007Q4

REPORT INFORMATION
  Report Type: 
  Country: None (occurrence: None)
  Receive Date: 20071030
  Receipt Date: 20071030
  Transmission Date: 20080405
  Serious: Yes (Hospitalization)
  Sender: FDA-Public Use
  Company Number: None

PATIENT
  Age: 31 Year
  Sex: Male
  Weight: 47.4 kg

DRUGS (11)
  1. ADRIAMYCIN PFS [Suspect]
     Indication: CHONDROSARCOMA
     Dosage: 40 MG  D1 -D3  IV
     Route: 042
     Dates: start: 20070224, end: 20070228
  2. IFOSFAMIDE [Suspect]
     Indication: CHONDROSARCOMA
     Dosage: 4G  D1 - D5   IV
     Route: 042
     Dates: start: 20070224, end: 20070228
  3. MS CONTIN [Concomitant]
  4. LEVAQUIN [Concomitant]
  5. NEULASTA [Concomitant]
  6. COLACE [Concomitant]
  7. ATIVAN [Concomitant]
  8. SENOKAT [Concomitant]
  9. PHENERGAN HCL [Concomitant]
  10. HYDROMORPHONE HCL [Concomitant]
  11. AMBIEN [Concomitant]

REACTIONS (4)
  - GASTRIC DISORDER [None]
  - NEUTROPENIA [None]
  - PERITONEAL PERFORATION [None]
  - WHITE BLOOD CELL COUNT DECREASED [None]
